FAERS Safety Report 20202278 (Version 1)
Quarter: 2021Q4

REPORT INFORMATION
  Report Type: Report from Study
  Country: US (occurrence: US)
  Receive Date: 20211217
  Receipt Date: 20211217
  Transmission Date: 20220303
  Serious: No
  Sender: FDA-Public Use
  Company Number: US-NOVARTISTESTPH-NVSC2021US288900

PATIENT
  Sex: Female

DRUGS (1)
  1. ENTRESTO [Suspect]
     Active Substance: SACUBITRIL\VALSARTAN
     Indication: Product used for unknown indication
     Dosage: UNK UNK, QD (24/26MG)
     Route: 048

REACTIONS (5)
  - Sinus disorder [Unknown]
  - Injury [Unknown]
  - Scar [Unknown]
  - Weight decreased [Unknown]
  - Throat clearing [Unknown]
